FAERS Safety Report 12781361 (Version 2)
Quarter: 2019Q2

REPORT INFORMATION
  Report Type: Spontaneous
  Country: US (occurrence: US)
  Receive Date: 20160926
  Receipt Date: 20190415
  Transmission Date: 20190711
  Serious: Yes (Hospitalization, Other)
  Sender: FDA-Public Use
  Company Number: US-ADAPT PHARMA INC-2016ADP00117

PATIENT
  Age: 58 Year
  Sex: Female
  Weight: 63.49 kg

DRUGS (3)
  1. OPSUMIT [Suspect]
     Active Substance: MACITENTAN
     Indication: PULMONARY ARTERIAL HYPERTENSION
     Dosage: 10 MG, 1X/DAY
     Route: 048
     Dates: start: 20140506
  2. TYVASO [Suspect]
     Active Substance: TREPROSTINIL
     Indication: PULMONARY ARTERIAL HYPERTENSION
     Dosage: 4 UNK, 1X/DAY
     Dates: start: 20141208
  3. NALOXONE HYDROCHLORIDE. [Suspect]
     Active Substance: NALOXONE HYDROCHLORIDE
     Indication: OVERDOSE
     Dosage: UNK,UNK
     Route: 065
     Dates: start: 20160729, end: 20160729

REACTIONS (23)
  - Pain in jaw [Recovering/Resolving]
  - Memory impairment [Unknown]
  - Abdominal distension [Unknown]
  - Headache [Unknown]
  - Cough [Unknown]
  - Arthralgia [Recovering/Resolving]
  - Fatigue [Unknown]
  - Myalgia [Unknown]
  - Cardiac failure [Recovering/Resolving]
  - Biliary colic [Unknown]
  - Depressed mood [Unknown]
  - Syncope [Unknown]
  - Hypoaesthesia [Unknown]
  - Dizziness [Unknown]
  - Gastric disorder [Unknown]
  - Oesophageal food impaction [Unknown]
  - Insomnia [Unknown]
  - Abdominal discomfort [Unknown]
  - Rash generalised [Unknown]
  - Asthenia [Unknown]
  - Diarrhoea [Unknown]
  - Nervousness [Unknown]
  - Presyncope [Unknown]

NARRATIVE: CASE EVENT DATE: 20160729
